FAERS Safety Report 22223158 (Version 3)
Quarter: 2023Q2

REPORT INFORMATION
  Report Type: Spontaneous
  Country: JP (occurrence: JP)
  Receive Date: 20230418
  Receipt Date: 20230503
  Transmission Date: 20230722
  Serious: Yes (Other)
  Sender: FDA-Public Use
  Company Number: JP-PFIZER INC-PV202300069901

PATIENT
  Age: 5 Decade
  Sex: Male

DRUGS (3)
  1. PAXLOVID [Interacting]
     Active Substance: NIRMATRELVIR\RITONAVIR
     Indication: COVID-19
     Dosage: 3 DF, 2X/DAY (NMV 300 MG, RTV 100 MG, BID)
  2. TACROLIMUS [Interacting]
     Active Substance: TACROLIMUS
     Indication: Lung transplant
     Dosage: 1 MG, 1X/DAY
  3. ITRACONAZOLE [Interacting]
     Active Substance: ITRACONAZOLE
     Indication: Lung transplant
     Dosage: 200 MG, 1X/DAY

REACTIONS (3)
  - Drug interaction [Unknown]
  - Drug level increased [Unknown]
  - Renal impairment [Recovering/Resolving]
